FAERS Safety Report 6636501-5 (Version None)
Quarter: 2010Q1

REPORT INFORMATION
  Report Type: 
  Country: None (occurrence: None)
  Receive Date: 20100310
  Receipt Date: 20100301
  Transmission Date: 20100710
  Serious: Yes (Hospitalization)
  Sender: FDA-Public Use
  Company Number: 522236

PATIENT
  Age: 21 Month
  Sex: Male

DRUGS (12)
  1. CYTARABINE [Suspect]
     Indication: PRECURSOR B-LYMPHOBLASTIC LYMPHOMA
     Dosage: INTRATHECAL
     Route: 037
  2. METHOTREXATE [Suspect]
     Indication: PRECURSOR B-LYMPHOBLASTIC LYMPHOMA
     Dosage: INTRATRACHEAL
     Route: 039
  3. VINCRISTINE SULFATE [Suspect]
     Indication: PRECURSOR B-LYMPHOBLASTIC LYMPHOMA
     Dosage: INTRAVENOUS
     Route: 042
  4. DEXAMETHASONE [Suspect]
     Indication: PRECURSOR B-LYMPHOBLASTIC LYMPHOMA
     Dosage: 2 DAY, INTRAVENOUS
     Route: 042
  5. DOXORUBICIN HCL [Suspect]
     Indication: PRECURSOR B-LYMPHOBLASTIC LYMPHOMA
     Dosage: INTRAVENOUS
     Route: 042
  6. MERCAPTOPURINE [Suspect]
     Indication: PRECURSOR B-LYMPHOBLASTIC LYMPHOMA
     Dosage: ORAL
     Route: 048
  7. PEGASPARGASE [Suspect]
     Indication: PRECURSOR B-LYMPHOBLASTIC LYMPHOMA
     Dosage: INTRAMUSCULAR
     Route: 030
  8. THIOGUANINE [Suspect]
     Dosage: ORAL
     Route: 048
  9. ANTIBIOTICS [Concomitant]
  10. VORICONAZOLE [Concomitant]
  11. TERBINAFINE [Concomitant]
  12. GRANULOCYTE COLONY STIMULATING FACTOR [Concomitant]

REACTIONS (11)
  - ACQUIRED TRACHEO-OESOPHAGEAL FISTULA [None]
  - ADENOVIRUS INFECTION [None]
  - COUGH [None]
  - CULTURE POSITIVE [None]
  - DEVICE RELATED INFECTION [None]
  - DYSPNOEA [None]
  - FUNGAL SKIN INFECTION [None]
  - NEUTROPENIA [None]
  - PSEUDOMONAL BACTERAEMIA [None]
  - STREPTOCOCCAL INFECTION [None]
  - TACHYPNOEA [None]
